FAERS Safety Report 16198314 (Version 1)
Quarter: 2019Q2

REPORT INFORMATION
  Report Type: Report from Study
  Country: US (occurrence: US)
  Receive Date: 20190415
  Receipt Date: 20190415
  Transmission Date: 20190711
  Serious: Yes (Other)
  Sender: FDA-Public Use
  Company Number: US-JNJFOC-20190410414

PATIENT
  Sex: Male
  Weight: 88.45 kg

DRUGS (2)
  1. STELARA [Suspect]
     Active Substance: USTEKINUMAB
     Indication: PRODUCT USED FOR UNKNOWN INDICATION
     Dosage: INJECTED 1 SYRINGE ON WEEK 0??MAINTENANCE: INJECT 1 SYRINGE ON WEEK 4 AND THEN EVERY 12 WEEKS
     Route: 058
  2. CLOBETASOL [Concomitant]
     Active Substance: CLOBETASOL
     Dosage: PRN: AS NECESSARY
     Route: 065

REACTIONS (4)
  - Psoriasis [Unknown]
  - Psoriatic arthropathy [Unknown]
  - Localised oedema [Unknown]
  - Hepatic cirrhosis [Unknown]
